FAERS Safety Report 8053933-1 (Version None)
Quarter: 2012Q1

REPORT INFORMATION
  Report Type: 
  Country: None (occurrence: None)
  Receive Date: 20120118
  Receipt Date: 20120113
  Transmission Date: 20120608
  Serious: Yes (Life-Threatening, Hospitalization)
  Sender: FDA-Public Use
  Company Number: US-ELI_LILLY_AND_COMPANY-US201201004452

PATIENT
  Sex: Male

DRUGS (3)
  1. ADCIRCA [Suspect]
     Indication: PULMONARY ARTERIAL HYPERTENSION
     Dosage: 40 MG, QD
     Dates: start: 20110515
  2. TRACLEER [Concomitant]
     Dosage: 125 MG, UNK
  3. TREPROSTINIL [Concomitant]
     Dosage: 1 DF, UNK

REACTIONS (3)
  - THROMBOTIC THROMBOCYTOPENIC PURPURA [None]
  - DYSPNOEA [None]
  - HEADACHE [None]
